FAERS Safety Report 5122150-7 (Version None)
Quarter: 2006Q4

REPORT INFORMATION
  Report Type: 
  Country: None (occurrence: None)
  Receive Date: 20061004
  Receipt Date: 20061004
  Transmission Date: 20070319
  Serious: Yes (Hospitalization)
  Sender: FDA-Public Use
  Company Number: None

PATIENT
  Age: 47 Year
  Sex: Female
  Weight: 72.5755 kg

DRUGS (11)
  1. VALPROIC ACID [Suspect]
     Indication: MIGRAINE
     Dosage: 750MG ONCE INTRAVENOUS
     Route: 042
     Dates: start: 20060524, end: 20060524
  2. PAROXETINE HCL [Concomitant]
  3. METHADONE HCL [Concomitant]
  4. PREGABALIN [Concomitant]
  5. AMITRIPTYLINE HCL [Concomitant]
  6. PROPRANOLOL [Concomitant]
  7. PROMETHAZINE [Concomitant]
  8. LORATADINE [Concomitant]
  9. INDOMETHACIN [Concomitant]
  10. BUTALBITAL, ACETAMINOPHEN, CAFFEINE [Concomitant]
  11. PROPOXYPHENE HCL AND ACETAMINOPHEN [Concomitant]

REACTIONS (1)
  - DRUG HYPERSENSITIVITY [None]
